FAERS Safety Report 14786604 (Version 7)
Quarter: 2018Q4

REPORT INFORMATION
  Report Type: Spontaneous
  Country: US (occurrence: US)
  Receive Date: 20180420
  Receipt Date: 20181009
  Transmission Date: 20190204
  Serious: Yes (Hospitalization, Other)
  Sender: FDA-Public Use
  Company Number: US-SA-2018SA074106

PATIENT
  Age: 54 Year
  Sex: Female

DRUGS (2)
  1. KEVZARA [Suspect]
     Active Substance: SARILUMAB
     Indication: RHEUMATOID ARTHRITIS
     Dosage: 200 MG,QOW
     Route: 058
     Dates: start: 20171208
  2. KEVZARA [Suspect]
     Active Substance: SARILUMAB
     Dosage: 200 MG,QOW
     Route: 058
     Dates: start: 20180502

REACTIONS (7)
  - Arthralgia [Not Recovered/Not Resolved]
  - Fatigue [Not Recovered/Not Resolved]
  - Hypertensive crisis [Recovered/Resolved]
  - Staphylococcal infection [Recovering/Resolving]
  - Respiratory disorder [Recovered/Resolved]
  - Malaise [Not Recovered/Not Resolved]
  - Rheumatoid arthritis [Not Recovered/Not Resolved]

NARRATIVE: CASE EVENT DATE: 201712
